FAERS Safety Report 23905103 (Version 2)
Quarter: 2024Q2

REPORT INFORMATION
  Report Type: Spontaneous
  Country: DE (occurrence: DE)
  Receive Date: 20240527
  Receipt Date: 20240607
  Transmission Date: 20240715
  Serious: Yes (Other)
  Sender: FDA-Public Use
  Company Number: DE-BAYER-2024A076128

PATIENT
  Age: 16 Year
  Sex: Female

DRUGS (2)
  1. XARELTO [Suspect]
     Active Substance: RIVAROXABAN
     Indication: Deep vein thrombosis
     Dosage: UNK
     Route: 048
     Dates: start: 202307, end: 202310
  2. XARELTO [Suspect]
     Active Substance: RIVAROXABAN
     Indication: Venous thrombosis limb
     Route: 048

REACTIONS (3)
  - Hyperhomocysteinaemia [Unknown]
  - Hyperlipidaemia [Unknown]
  - Drug ineffective [Unknown]

NARRATIVE: CASE EVENT DATE: 20231001
